FAERS Safety Report 8306627-9 (Version None)
Quarter: 2012Q1

REPORT INFORMATION
  Report Type: 
  Country: None (occurrence: None)
  Receive Date: 20120326
  Receipt Date: 20111201
  Transmission Date: 20120608
  Serious: Yes (Other)
  Sender: FDA-Public Use
  Company Number: PHHY2011US30336

PATIENT
  Age: 84 Year
  Sex: Male

DRUGS (5)
  1. NSAID'S (NO INGREDIENTS/SUBSTANCES) [Concomitant]
  2. TASIGNA [Suspect]
     Indication: CHRONIC MYELOID LEUKAEMIA
     Dosage: 400 MG, BID, ORAL , 300 MG, BID, ORAL, 200 MG, BID, ORAL
     Route: 048
     Dates: start: 20110401
  3. TASIGNA [Suspect]
     Indication: CHRONIC MYELOID LEUKAEMIA
     Dosage: 400 MG, BID, ORAL , 300 MG, BID, ORAL, 200 MG, BID, ORAL
     Route: 048
     Dates: start: 20111001
  4. TASIGNA [Suspect]
     Indication: CHRONIC MYELOID LEUKAEMIA
     Dosage: 400 MG, BID, ORAL , 300 MG, BID, ORAL, 200 MG, BID, ORAL
     Route: 048
     Dates: start: 20110504, end: 20110510
  5. TASIGNA [Suspect]
     Indication: CHRONIC MYELOID LEUKAEMIA
     Dosage: 400 MG, BID, ORAL , 300 MG, BID, ORAL, 200 MG, BID, ORAL
     Route: 048
     Dates: start: 20110405, end: 20110822

REACTIONS (6)
  - PRURITUS [None]
  - DIZZINESS [None]
  - PLATELET COUNT DECREASED [None]
  - GASTRIC DISORDER [None]
  - ABDOMINAL PAIN UPPER [None]
  - LOSS OF CONSCIOUSNESS [None]
